FAERS Safety Report 7925730-6 (Version None)
Quarter: 2011Q4

REPORT INFORMATION
  Report Type: 
  Country: None (occurrence: None)
  Receive Date: 20111118
  Receipt Date: 20110412
  Transmission Date: 20120403
  Serious: No
  Sender: FDA-Public Use
  Company Number: US-AMGEN-USASP2011019345

PATIENT
  Age: 45 Year
  Sex: Female

DRUGS (2)
  1. ENBREL [Suspect]
     Indication: PSORIASIS
     Dosage: 50 MG, 2 TIMES/WK
     Dates: start: 20110315, end: 20110329
  2. METHOTREXATE [Concomitant]
     Dates: start: 20100101

REACTIONS (7)
  - INJECTION SITE SWELLING [None]
  - ERYTHEMA [None]
  - INJECTION SITE WARMTH [None]
  - INJECTION SITE INDURATION [None]
  - INFLAMMATION [None]
  - INJECTION SITE PAIN [None]
  - CONTUSION [None]
